FAERS Safety Report 24621847 (Version 2)
Quarter: 2025Q3

REPORT INFORMATION
  Report Type: Spontaneous
  Country: US (occurrence: US)
  Receive Date: 20241114
  Receipt Date: 20250708
  Transmission Date: 20251021
  Serious: No
  Sender: SANOFI AVENTIS
  Company Number: US-SA-2024SA327387

PATIENT
  Age: 16 Year
  Sex: Male

DRUGS (7)
  1. DUPIXENT [Suspect]
     Active Substance: DUPILUMAB
     Indication: Dermatitis atopic
     Route: 058
     Dates: start: 20210329, end: 2024
  2. DUPIXENT [Suspect]
     Active Substance: DUPILUMAB
     Route: 058
     Dates: start: 20241102, end: 20250702
  3. MUPIROCIN [Concomitant]
     Active Substance: MUPIROCIN
  4. MUPIROCIN [Concomitant]
     Active Substance: MUPIROCIN
  5. CLOBETASOL [Concomitant]
     Active Substance: CLOBETASOL
  6. SERTRALINE [Concomitant]
     Active Substance: SERTRALINE HYDROCHLORIDE
  7. ALLEGRA [Concomitant]
     Active Substance: FEXOFENADINE HYDROCHLORIDE

REACTIONS (12)
  - Illness [Unknown]
  - Back pain [Unknown]
  - Diarrhoea [Unknown]
  - Myalgia [Unknown]
  - Dizziness [Unknown]
  - Vision blurred [Unknown]
  - Gastritis [Unknown]
  - Headache [Unknown]
  - Insomnia [Unknown]
  - Arthralgia [Unknown]
  - Conjunctivitis [Unknown]
  - Eczema [Recovered/Resolved]

NARRATIVE: CASE EVENT DATE: 20240101
